FAERS Safety Report 16302742 (Version 1)
Quarter: 2019Q2

REPORT INFORMATION
  Report Type: Spontaneous
  Country: US (occurrence: US)
  Receive Date: 20190513
  Receipt Date: 20190513
  Transmission Date: 20190711
  Serious: No
  Sender: FDA-Public Use
  Company Number: US-009507513-1904USA013011

PATIENT
  Age: 27 Year
  Sex: Female

DRUGS (7)
  1. PREGNYL [Suspect]
     Active Substance: CHORIOGONADOTROPIN ALFA
     Indication: INFERTILITY FEMALE
     Dosage: 1 DOSAGE FORM, PRN
     Route: 030
     Dates: start: 20190410
  2. DOXYCLIN [Concomitant]
     Active Substance: DOXYCYCLINE
  3. GANIRELIX ACETATE INJECTION [Suspect]
     Active Substance: GANIRELIX ACETATE
     Indication: INFERTILITY FEMALE
     Dosage: 250 MICROGRAM, QD
     Route: 058
     Dates: start: 20190410
  4. MENOPUR [Concomitant]
     Active Substance: FOLLITROPIN\LUTEINIZING HORMONE
  5. FOLLISTIM [Concomitant]
     Active Substance: FOLLITROPIN
     Dosage: 75 U, QD
     Route: 058
  6. HUMIRA [Concomitant]
     Active Substance: ADALIMUMAB
  7. LEUPROLIDE [Concomitant]
     Active Substance: LEUPROLIDE

REACTIONS (4)
  - Drug hypersensitivity [Unknown]
  - Injection site pain [Unknown]
  - Injection site mass [Unknown]
  - Injection site erythema [Unknown]

NARRATIVE: CASE EVENT DATE: 201904
